FAERS Safety Report 10361109 (Version 3)
Quarter: 2014Q3

REPORT INFORMATION
  Report Type: Report from Study
  Country: GB (occurrence: GB)
  Receive Date: 20140804
  Receipt Date: 20140822
  Transmission Date: 20150326
  Serious: Yes (Other)
  Sender: FDA-Public Use
  Company Number: ALCN2014GB003663

PATIENT
  Age: 42 Year
  Sex: Male

DRUGS (9)
  1. IOPIDINE [Suspect]
     Active Substance: APRACLONIDINE HYDROCHLORIDE
     Indication: RETINOPATHY OF PREMATURITY
     Dosage: UNK
     Route: 047
  2. IOPIDINE [Suspect]
     Active Substance: APRACLONIDINE HYDROCHLORIDE
     Indication: INTRAOCULAR PRESSURE INCREASED
  3. ACETAZOLAMIDE. [Suspect]
     Active Substance: ACETAZOLAMIDE
     Indication: RETINOPATHY OF PREMATURITY
     Dosage: 250 MG, BID
  4. ACETAZOLAMIDE. [Suspect]
     Active Substance: ACETAZOLAMIDE
     Indication: INTRAOCULAR PRESSURE INCREASED
  5. COSOPT [Suspect]
     Active Substance: DORZOLAMIDE HYDROCHLORIDE\TIMOLOL MALEATE
     Indication: INTRAOCULAR PRESSURE INCREASED
  6. LATANOPROST. [Suspect]
     Active Substance: LATANOPROST
     Indication: RETINOPATHY OF PREMATURITY
     Dosage: UNK
     Route: 047
  7. AVASTIN [Suspect]
     Active Substance: BEVACIZUMAB
     Indication: INTRAOCULAR PRESSURE INCREASED
     Dosage: 1 DF, ONCE/SINGLE
     Route: 031
  8. COSOPT [Suspect]
     Active Substance: DORZOLAMIDE HYDROCHLORIDE\TIMOLOL MALEATE
     Indication: RETINOPATHY OF PREMATURITY
     Dosage: UNK
     Route: 047
  9. LATANOPROST. [Suspect]
     Active Substance: LATANOPROST
     Indication: INTRAOCULAR PRESSURE INCREASED

REACTIONS (4)
  - Vision blurred [Unknown]
  - Drug ineffective [Unknown]
  - Photocoagulation [Unknown]
  - Intraocular pressure increased [Unknown]
